FAERS Safety Report 5599047-1 (Version None)
Quarter: 2008Q1

REPORT INFORMATION
  Report Type: 
  Country: None (occurrence: None)
  Receive Date: 20080122
  Receipt Date: 20080116
  Transmission Date: 20080703
  Serious: Yes (Hospitalization)
  Sender: FDA-Public Use
  Company Number: GB-BOEHRINGER INGELHEIM PHARMACEUTICALS, INC.-2007-DE-06576GD

PATIENT
  Age: 74 Year
  Sex: Male

DRUGS (10)
  1. TIOTROPIUM-BROMIDE [Suspect]
     Indication: CHRONIC OBSTRUCTIVE PULMONARY DISEASE
     Route: 055
     Dates: start: 20030808, end: 20050226
  2. TIOTROPIUM-BROMIDE [Suspect]
     Route: 055
     Dates: start: 20050303
  3. DILTAHEXAL [Concomitant]
  4. BENALAPRIL [Concomitant]
  5. ESIDRIX [Concomitant]
  6. ASS RATIOPHARM [Concomitant]
  7. KALINOR [Concomitant]
  8. BLEMINOL [Concomitant]
  9. PROSTAURGENINE [Concomitant]
  10. TRUSOPT [Concomitant]

REACTIONS (1)
  - CONDITION AGGRAVATED [None]
